FAERS Safety Report 4377686-3 (Version None)
Quarter: 2004Q2

REPORT INFORMATION
  Report Type: 
  Country: None (occurrence: None)
  Receive Date: 20040602
  Receipt Date: 20031205
  Transmission Date: 20050107
  Serious: Yes (Life-Threatening)
  Sender: FDA-Public Use
  Company Number: NSADSS2003019942

PATIENT
  Sex: Female
  Weight: 57.5 kg

DRUGS (2)
  1. PROPULSID [Suspect]
     Indication: DYSPEPSIA
     Dosage: 20 MG, 4 IN 1 DAY
     Dates: start: 19951201
  2. PROPULSID [Suspect]
     Indication: GASTROOESOPHAGEAL REFLUX DISEASE
     Dosage: 20 MG, 4 IN 1 DAY
     Dates: start: 19951201

REACTIONS (4)
  - ARRHYTHMIA [None]
  - CARDIAC DISORDER [None]
  - ELECTROCARDIOGRAM QT PROLONGED [None]
  - HEART RATE INCREASED [None]
